APPROVED DRUG PRODUCT: FIDAXOMICIN
Active Ingredient: FIDAXOMICIN
Strength: 200MG
Dosage Form/Route: TABLET;ORAL
Application: A208443 | Product #001 | TE Code: AB
Applicant: ACTAVIS LABORATORIES FL INC AN INDIRECT WHOLLY OWNED SUB OF TEVA PHARMACEUTICALS USA INC
Approved: Jan 16, 2024 | RLD: No | RS: No | Type: RX